FAERS Safety Report 5597602-6 (Version None)
Quarter: 2008Q1

REPORT INFORMATION
  Report Type: 
  Country: None (occurrence: None)
  Receive Date: 20080121
  Receipt Date: 20080118
  Transmission Date: 20080703
  Serious: Yes (Other)
  Sender: FDA-Public Use
  Company Number: B0504021A

PATIENT
  Age: 26 Year
  Sex: Male

DRUGS (15)
  1. ZIAGEN [Suspect]
     Indication: HIV INFECTION
     Dosage: 300MG TWICE PER DAY
     Route: 048
     Dates: start: 20060113
  2. REYATAZ [Suspect]
     Indication: HIV INFECTION
     Route: 048
     Dates: start: 20041221, end: 20070613
  3. NORVIR [Suspect]
     Indication: HIV INFECTION
     Dosage: 200MG PER DAY
     Route: 048
     Dates: start: 20041221
  4. VIREAD [Suspect]
     Indication: HIV INFECTION
     Dosage: 300MG PER DAY
     Route: 048
     Dates: start: 20060113
  5. RETROVIR [Concomitant]
     Indication: HIV INFECTION
     Route: 048
  6. VIDEX EC [Concomitant]
     Indication: HIV INFECTION
     Route: 048
  7. EPIVIR [Concomitant]
     Indication: HIV INFECTION
     Dosage: 300MG PER DAY
     Route: 048
  8. ZERIT [Concomitant]
     Indication: HIV INFECTION
     Route: 048
  9. CRIXIVAN [Concomitant]
     Indication: HIV INFECTION
     Route: 048
  10. VIRACEPT [Concomitant]
     Indication: HIV INFECTION
     Route: 048
  11. INVIRASE [Concomitant]
     Indication: HIV INFECTION
     Route: 048
  12. NORVIR [Concomitant]
     Route: 048
  13. VIRAMUNE [Concomitant]
     Indication: HIV INFECTION
     Route: 048
  14. KALETRA [Concomitant]
     Indication: HIV INFECTION
     Route: 048
  15. LEXIVA [Concomitant]
     Indication: HIV INFECTION
     Dosage: 700MG TWICE PER DAY
     Route: 048

REACTIONS (2)
  - ABDOMINAL PAIN LOWER [None]
  - CALCULUS URINARY [None]
